FAERS Safety Report 20870234 (Version 1)
Quarter: 2022Q2

REPORT INFORMATION
  Report Type: Spontaneous
  Country: US (occurrence: US)
  Receive Date: 20220525
  Receipt Date: 20220525
  Transmission Date: 20220721
  Serious: No
  Sender: FDA-Public Use
  Company Number: US-BRISTOL-MYERS SQUIBB COMPANY-2022-029644

PATIENT
  Age: 37 Year
  Sex: Female
  Weight: 69.4 kg

DRUGS (1)
  1. ELIQUIS [Suspect]
     Active Substance: APIXABAN
     Indication: Pulmonary embolism
     Dosage: DOSE : 5MG;     FREQ : TWICE A DAY
     Route: 048
     Dates: start: 20220406

REACTIONS (2)
  - Constipation [Unknown]
  - Discomfort [Unknown]

NARRATIVE: CASE EVENT DATE: 20220426
